FAERS Safety Report 22020824 (Version 1)
Quarter: 2023Q1

REPORT INFORMATION
  Report Type: Spontaneous
  Country: CN (occurrence: CN)
  Receive Date: 20230222
  Receipt Date: 20230222
  Transmission Date: 20230417
  Serious: Yes (Life-Threatening, Hospitalization, Other)
  Sender: FDA-Public Use
  Company Number: CN-GLAXOSMITHKLINE-CN2023GSK024841

PATIENT

DRUGS (1)
  1. LAMOTRIGINE [Suspect]
     Active Substance: LAMOTRIGINE
     Indication: Epilepsy
     Dosage: 100 MG, QD
     Route: 048

REACTIONS (6)
  - Cardiopulmonary failure [Unknown]
  - Cardiac arrest [Unknown]
  - Syncope [Unknown]
  - Apnoea [Recovered/Resolved]
  - Bradycardia [Unknown]
  - Therapy cessation [Unknown]
